FAERS Safety Report 25201525 (Version 1)
Quarter: 2025Q2

REPORT INFORMATION
  Report Type: Spontaneous
  Country: US (occurrence: US)
  Receive Date: 20250416
  Receipt Date: 20250416
  Transmission Date: 20250717
  Serious: No
  Sender: SANOFI AVENTIS
  Company Number: US-SA-2025SA109097

PATIENT
  Sex: Male

DRUGS (4)
  1. DUPIXENT [Suspect]
     Active Substance: DUPILUMAB
     Indication: Eosinophilic oesophagitis
     Dosage: 300 MG, QW
     Route: 058
     Dates: start: 20240709
  2. FLUCONAZOLE [Concomitant]
     Active Substance: FLUCONAZOLE
  3. OMEPRAZOLE [Concomitant]
     Active Substance: OMEPRAZOLE
  4. PROPOFOL [Concomitant]
     Active Substance: PROPOFOL

REACTIONS (4)
  - Impaired quality of life [Unknown]
  - Injection site reaction [Unknown]
  - Drug ineffective [Unknown]
  - Product dose omission in error [Unknown]
